FAERS Safety Report 5996102-9 (Version None)
Quarter: 2008Q4

REPORT INFORMATION
  Report Type: 
  Country: None (occurrence: None)
  Receive Date: 20081212
  Receipt Date: 20080620
  Transmission Date: 20090506
  Serious: No
  Sender: FDA-Public Use
  Company Number: US-AMGEN-KDL288747

PATIENT
  Sex: Male

DRUGS (1)
  1. ENBREL [Suspect]
     Indication: RHEUMATOID ARTHRITIS
     Route: 058
     Dates: start: 20080205

REACTIONS (4)
  - ABDOMINAL DISCOMFORT [None]
  - ANAEMIA [None]
  - JOINT SWELLING [None]
  - OEDEMA PERIPHERAL [None]
